FAERS Safety Report 23054486 (Version 1)
Quarter: 2023Q4

REPORT INFORMATION
  Report Type: Spontaneous
  Country: US (occurrence: US)
  Receive Date: 20231011
  Receipt Date: 20231011
  Transmission Date: 20240109
  Serious: No
  Sender: FDA-Public Use
  Company Number: US-PFIZER INC-202300317185

PATIENT
  Age: 43 Year
  Sex: Female
  Weight: 77.11 kg

DRUGS (3)
  1. PAXLOVID [Suspect]
     Active Substance: NIRMATRELVIR\RITONAVIR
     Indication: COVID-19 treatment
     Dosage: UNK
  2. SERTRALINE [Concomitant]
     Active Substance: SERTRALINE HYDROCHLORIDE
     Dosage: 75 MG
  3. CIMETIDINE [CIMETIDINE HYDROCHLORIDE] [Concomitant]
     Dosage: 100 MG

REACTIONS (8)
  - Dysphagia [Unknown]
  - Dysgeusia [Unknown]
  - Dyspnoea [Unknown]
  - Myalgia [Unknown]
  - Pharyngitis streptococcal [Unknown]
  - Muscle tightness [Unknown]
  - Throat tightness [Unknown]
  - Chromaturia [Unknown]
